FAERS Safety Report 9031051 (Version 1)
Quarter: 2013Q1

REPORT INFORMATION
  Report Type: Spontaneous
  Country: US (occurrence: US)
  Receive Date: 20130123
  Receipt Date: 20130123
  Transmission Date: 20140127
  Serious: Yes (Other)
  Sender: FDA-Public Use
  Company Number: US-ROXANE LABORATORIES, INC.-2013-RO-00092RO

PATIENT
  Age: 54 Year
  Sex: Male

DRUGS (8)
  1. PREDNISONE [Suspect]
     Indication: GRAFT VERSUS HOST DISEASE
  2. BUDESONIDE [Suspect]
     Indication: GRAFT VERSUS HOST DISEASE
     Route: 048
  3. FLUDARABINE [Suspect]
     Indication: ACUTE MYELOID LEUKAEMIA
  4. MELPHALAN [Suspect]
     Indication: ACUTE MYELOID LEUKAEMIA
  5. ALEMTUZUMAB [Suspect]
     Indication: ACUTE MYELOID LEUKAEMIA
  6. TACROLIMUS [Suspect]
     Indication: ACUTE MYELOID LEUKAEMIA
  7. INFLIXIMAB [Suspect]
     Indication: GRAFT VERSUS HOST DISEASE
  8. RITUXIMAB [Suspect]
     Indication: GRAFT VERSUS HOST DISEASE

REACTIONS (3)
  - Graft versus host disease [Unknown]
  - Cushing^s syndrome [Unknown]
  - Diabetes mellitus [Unknown]
